FAERS Safety Report 24731102 (Version 1)
Quarter: 2024Q4

REPORT INFORMATION
  Report Type: Spontaneous
  Country: PL (occurrence: PL)
  Receive Date: 20241213
  Receipt Date: 20241213
  Transmission Date: 20250115
  Serious: Yes (Hospitalization)
  Sender: TEVA
  Company Number: None

PATIENT
  Age: 63 Year
  Sex: Female
  Weight: 85 kg

DRUGS (4)
  1. FILGRASTIM [Suspect]
     Active Substance: FILGRASTIM
     Indication: Hairy cell leukaemia
     Dosage: TEVAGRASTIM AND THEN ZARZIO, 30 MIU/0.5 ML
     Route: 058
     Dates: start: 20200709, end: 20200720
  2. RITUXIMAB [Suspect]
     Active Substance: RITUXIMAB
     Indication: Hairy cell leukaemia
     Route: 042
     Dates: start: 20200626, end: 20200630
  3. CLADRIBINE [Suspect]
     Active Substance: CLADRIBINE
     Indication: Hairy cell leukaemia
     Route: 042
     Dates: start: 20200626, end: 20200630
  4. FILGRASTIM [Suspect]
     Active Substance: FILGRASTIM
     Indication: Hairy cell leukaemia
     Dosage: 30 MU/0.5 ML
     Route: 058
     Dates: start: 20200709, end: 20200720

REACTIONS (3)
  - Rash maculo-papular [Recovered/Resolved]
  - Face oedema [Recovered/Resolved]
  - Dermatitis exfoliative generalised [Recovered/Resolved]

NARRATIVE: CASE EVENT DATE: 20200709
